FAERS Safety Report 21297014 (Version 1)
Quarter: 2022Q3

REPORT INFORMATION
  Report Type: Spontaneous
  Country: ES (occurrence: ES)
  Receive Date: 20220906
  Receipt Date: 20220906
  Transmission Date: 20221027
  Serious: Yes (Hospitalization)
  Sender: FDA-Public Use
  Company Number: None

PATIENT
  Age: 77 Year
  Sex: Male

DRUGS (1)
  1. ATORVASTATIN [Suspect]
     Active Substance: ATORVASTATIN
     Indication: Dyslipidaemia
     Dosage: 80 MILLIGRAM DAILY; 0-0-1, (7400A), DURATION-1884 DAYS
     Dates: start: 20150311, end: 20200507

REACTIONS (2)
  - Autoimmune myositis [Recovered/Resolved]
  - Necrotising myositis [Recovered/Resolved]

NARRATIVE: CASE EVENT DATE: 20200506
